FAERS Safety Report 23887425 (Version 1)
Quarter: 2024Q2

REPORT INFORMATION
  Report Type: Spontaneous
  Country: US (occurrence: US)
  Receive Date: 20240523
  Receipt Date: 20240523
  Transmission Date: 20240716
  Serious: No
  Sender: FDA-Public Use
  Company Number: US-BRISTOL-MYERS SQUIBB COMPANY-2024-074580

PATIENT
  Age: 62 Year
  Sex: Male

DRUGS (2)
  1. ORENCIA [Suspect]
     Active Substance: ABATACEPT
     Indication: Rheumatoid arthritis
     Route: 058
     Dates: start: 201906
  2. ORENCIA [Suspect]
     Active Substance: ABATACEPT
     Route: 042

REACTIONS (2)
  - Joint swelling [Not Recovered/Not Resolved]
  - Arthralgia [Recovering/Resolving]
